FAERS Safety Report 22241213 (Version 1)
Quarter: 2023Q2

REPORT INFORMATION
  Report Type: Spontaneous
  Country: NL (occurrence: NL)
  Receive Date: 20230421
  Receipt Date: 20230421
  Transmission Date: 20230721
  Serious: Yes (Hospitalization)
  Sender: FDA-Public Use
  Company Number: None

PATIENT
  Sex: Female
  Weight: 101 kg

DRUGS (4)
  1. METFORMIN [Suspect]
     Active Substance: METFORMIN HYDROCHLORIDE
     Indication: Type 2 diabetes mellitus
     Dosage: 500 MG, Q12H (2X PER DAG 1 STUK)
     Route: 065
     Dates: start: 20230316, end: 20230320
  2. CANDESARTAN [Concomitant]
     Active Substance: CANDESARTAN
     Indication: Product used for unknown indication
     Dosage: 8 MG (TABLET)
     Route: 065
  3. ACECORT [Concomitant]
     Indication: Product used for unknown indication
     Dosage: 5 MG (TABLET)
     Route: 065
  4. LEVOTHYROXINE [Concomitant]
     Active Substance: LEVOTHYROXINE
     Indication: Product used for unknown indication
     Dosage: 75 UG (MICROGRAM)
     Route: 065

REACTIONS (3)
  - Adrenocortical insufficiency acute [Recovering/Resolving]
  - Hyponatraemia [Recovering/Resolving]
  - Diarrhoea [Recovering/Resolving]
